FAERS Safety Report 9314096 (Version 6)
Quarter: 2013Q2

REPORT INFORMATION
  Report Type: Spontaneous
  Country: US (occurrence: US)
  Receive Date: 20130529
  Receipt Date: 20130626
  Transmission Date: 20140414
  Serious: Yes (Hospitalization)
  Sender: FDA-Public Use
  Company Number: US-JNJFOC-20130512678

PATIENT
  Age: 76 Year
  Sex: Male
  Weight: 59.88 kg

DRUGS (2)
  1. XARELTO [Suspect]
     Indication: CEREBROVASCULAR ACCIDENT PROPHYLAXIS
     Route: 048
     Dates: end: 20130426
  2. XARELTO [Suspect]
     Indication: ATRIAL FIBRILLATION
     Route: 048
     Dates: end: 20130426

REACTIONS (3)
  - Pulmonary haemorrhage [Unknown]
  - Haemoptysis [Recovered/Resolved]
  - Respiratory failure [Recovered/Resolved]
